FAERS Safety Report 17082227 (Version 1)
Quarter: 2019Q4

REPORT INFORMATION
  Report Type: Spontaneous
  Country: US (occurrence: US)
  Receive Date: 20191030
  Receipt Date: 20191030
  Transmission Date: 20200122
  Serious: No
  Sender: FDA-Public Use
  Company Number: None

PATIENT
  Age: 56 Year
  Sex: Female

DRUGS (1)
  1. ORENCIA [Suspect]
     Active Substance: ABATACEPT
     Indication: RHEUMATOID ARTHRITIS
     Route: 058
     Dates: start: 201907

REACTIONS (7)
  - Respiratory tract infection [None]
  - Vomiting [None]
  - Influenza [None]
  - Diarrhoea [None]
  - Therapy cessation [None]
  - Herpes zoster [None]
  - Nausea [None]

NARRATIVE: CASE EVENT DATE: 20191030
